FAERS Safety Report 10032974 (Version 2)
Quarter: 2014Q2

REPORT INFORMATION
  Report Type: Report from Study
  Country: DE (occurrence: DE)
  Receive Date: 20140324
  Receipt Date: 20140530
  Transmission Date: 20141212
  Serious: Yes (Hospitalization, Other)
  Sender: FDA-Public Use
  Company Number: DE-ABBVIE-14P-062-1213861-00

PATIENT
  Age: 52 Year
  Sex: Female

DRUGS (1)
  1. HUMIRA [Suspect]
     Indication: PSORIASIS
     Route: 058
     Dates: start: 201012

REACTIONS (4)
  - Uterine polyp [Recovered/Resolved]
  - Arthralgia [Unknown]
  - Osteoarthritis [Unknown]
  - Haemorrhage [Recovered/Resolved]
